FAERS Safety Report 23800480 (Version 1)
Quarter: 2024Q2

REPORT INFORMATION
  Report Type: Spontaneous
  Country: PL (occurrence: None)
  Receive Date: 20240430
  Receipt Date: 20240430
  Transmission Date: 20240716
  Serious: Yes (Hospitalization)
  Sender: FDA-Public Use
  Company Number: 2024A101727

PATIENT
  Age: 56 Year
  Sex: Female
  Weight: 64 kg

DRUGS (6)
  1. OMEPRAZOLE [Suspect]
     Active Substance: DONEPEZIL HYDROCHLORIDE\OMEPRAZOLE\OMEPRAZOLE MAGNESIUM
     Route: 048
     Dates: start: 20201228, end: 20210104
  2. CELECOXIB [Suspect]
     Active Substance: CELECOXIB
     Dosage: 200MG, ORALLY, DOSAGE 400MG DAILY
     Route: 048
     Dates: start: 20201229
  3. SERTRALINE HYDROCHLORIDE [Suspect]
     Active Substance: SERTRALINE HYDROCHLORIDE
     Dosage: ON THE MORNING
     Route: 048
     Dates: start: 20201230, end: 20210104
  4. ENALAPRIL MALEATE [Suspect]
     Active Substance: ENALAPRIL MALEATE
     Dosage: MORNING
     Route: 048
     Dates: start: 20180110
  5. HYDROXYZINE HYDROCHLORIDE [Suspect]
     Active Substance: HYDROXYZINE HYDROCHLORIDE
     Dosage: IN THE EVENING, TREATED FOR MORE THAN ONE YEAR
     Route: 048
  6. INDAPAMIDE [Suspect]
     Active Substance: INDAPAMIDE
     Route: 048

REACTIONS (5)
  - Feeding disorder [Not Recovered/Not Resolved]
  - Oral discomfort [Not Recovered/Not Resolved]
  - Hypertension [Unknown]
  - Sacral pain [Unknown]
  - Depression [Unknown]
